FAERS Safety Report 15683066 (Version 1)
Quarter: 2018Q4

REPORT INFORMATION
  Report Type: Spontaneous
  Country: SI (occurrence: SI)
  Receive Date: 20181204
  Receipt Date: 20181204
  Transmission Date: 20190205
  Serious: Yes (Other)
  Sender: FDA-Public Use
  Company Number: SI-ACCORD-094870

PATIENT
  Age: 59 Year
  Sex: Female

DRUGS (3)
  1. AFLIBERCEPT [Concomitant]
     Active Substance: AFLIBERCEPT
  2. IRINOTECAN ACCORD [Suspect]
     Active Substance: IRINOTECAN
     Indication: COLON CANCER METASTATIC
     Dosage: STRENGTH: 20 MG/ML, VIAL
     Route: 042
     Dates: start: 20180108, end: 20180108
  3. FLUOROURACIL. [Concomitant]
     Active Substance: FLUOROURACIL

REACTIONS (6)
  - Sinus bradycardia [Recovered/Resolved]
  - Angina pectoris [Recovered/Resolved]
  - Hypertension [Recovered/Resolved]
  - Dyspnoea [Recovered/Resolved]
  - Nausea [Recovered/Resolved]
  - Hyperhidrosis [Recovered/Resolved]

NARRATIVE: CASE EVENT DATE: 20180108
